FAERS Safety Report 21935774 (Version 4)
Quarter: 2023Q1

REPORT INFORMATION
  Report Type: Report from Study
  Country: US (occurrence: US)
  Receive Date: 20230201
  Receipt Date: 20230310
  Transmission Date: 20230418
  Serious: Yes (Hospitalization, Other)
  Sender: FDA-Public Use
  Company Number: US-BAYER-2023P004911

PATIENT
  Age: 41 Year
  Sex: Female
  Weight: 78.912 kg

DRUGS (7)
  1. ADEMPAS [Suspect]
     Active Substance: RIOCIGUAT
     Indication: Pulmonary arterial hypertension
     Dosage: 0.5 MG, TID
     Route: 048
     Dates: start: 20221230
  2. ADEMPAS [Suspect]
     Active Substance: RIOCIGUAT
     Indication: Pulmonary arterial hypertension
     Dosage: 1.0 MG, TID
     Route: 048
  3. ADEMPAS [Suspect]
     Active Substance: RIOCIGUAT
     Indication: Pulmonary arterial hypertension
     Dosage: 1.5 MG, TID
     Route: 048
  4. ADEMPAS [Suspect]
     Active Substance: RIOCIGUAT
     Indication: Pulmonary arterial hypertension
     Dosage: 2 MG, TID
     Route: 048
  5. VELETRI [Concomitant]
     Active Substance: EPOPROSTENOL
     Dosage: UNK
  6. ELIQUIS [Concomitant]
     Active Substance: APIXABAN
     Dosage: UNK
  7. OPSUMIT [Concomitant]
     Active Substance: MACITENTAN
     Dosage: UNK

REACTIONS (25)
  - Pain in extremity [Not Recovered/Not Resolved]
  - Thrombosis [None]
  - Blood pressure diastolic decreased [None]
  - Gastric disorder [None]
  - Decreased appetite [None]
  - Hypoaesthesia [None]
  - Abdominal pain upper [Not Recovered/Not Resolved]
  - Cholelithiasis [None]
  - Nausea [Not Recovered/Not Resolved]
  - Headache [None]
  - Cyst [Not Recovered/Not Resolved]
  - Pulmonary hypertension [None]
  - Adverse event [None]
  - Pharyngitis [None]
  - Candida infection [None]
  - Paraesthesia [None]
  - Epistaxis [None]
  - Pain in jaw [None]
  - Dizziness [Not Recovered/Not Resolved]
  - Abdominal pain upper [Not Recovered/Not Resolved]
  - Accidental overdose [None]
  - Cholelithiasis [None]
  - COVID-19 [None]
  - Dyspnoea [None]
  - Dependence on oxygen therapy [None]

NARRATIVE: CASE EVENT DATE: 20230116
